FAERS Safety Report 16014163 (Version 2)
Quarter: 2019Q3

REPORT INFORMATION
  Report Type: Report from Study
  Country: DE (occurrence: DE)
  Receive Date: 20190227
  Receipt Date: 20190710
  Transmission Date: 20191004
  Serious: Yes (Hospitalization)
  Sender: FDA-Public Use
  Company Number: DE-ROCHE-2273904

PATIENT
  Sex: Female

DRUGS (5)
  1. ROACTEMRA [Suspect]
     Active Substance: TOCILIZUMAB
     Indication: RHEUMATOID ARTHRITIS
     Route: 058
     Dates: end: 20180504
  2. ROACTEMRA [Suspect]
     Active Substance: TOCILIZUMAB
     Route: 058
     Dates: start: 20180701
  3. PREDNISOLONE. [Concomitant]
     Active Substance: PREDNISOLONE
  4. IBUPROFEN. [Concomitant]
     Active Substance: IBUPROFEN
  5. PANTOPRAZOL [PANTOPRAZOLE] [Concomitant]
     Active Substance: PANTOPRAZOLE

REACTIONS (1)
  - Meningioma [Recovered/Resolved]
